FAERS Safety Report 25260286 (Version 1)
Quarter: 2025Q2

REPORT INFORMATION
  Report Type: Spontaneous
  Country: US (occurrence: None)
  Receive Date: 20250501
  Receipt Date: 20250501
  Transmission Date: 20250717
  Serious: No
  Sender: FDA-CTU
  Company Number: None

PATIENT
  Age: 44 Year
  Sex: Male

DRUGS (2)
  1. SEMAGLUTIDE [Suspect]
     Active Substance: SEMAGLUTIDE
     Indication: Diabetes mellitus
     Route: 058
  2. EMPAGLIFLOZIN\METFORMIN HYDROCHLORIDE [Suspect]
     Active Substance: EMPAGLIFLOZIN\METFORMIN HYDROCHLORIDE
     Indication: Diabetes mellitus
     Dosage: FREQUENCY : TWICE A DAY;?
     Route: 048

REACTIONS (13)
  - Vomiting [None]
  - Decreased appetite [None]
  - Hypophagia [None]
  - Euglycaemic diabetic ketoacidosis [None]
  - Oropharyngeal pain [None]
  - Nausea [None]
  - Hiccups [None]
  - Constipation [None]
  - Influenza [None]
  - Acute kidney injury [None]
  - Dyspepsia [None]
  - Diabetes mellitus [None]
  - Paradoxical drug reaction [None]

NARRATIVE: CASE EVENT DATE: 20250328
